FAERS Safety Report 12359261 (Version 1)
Quarter: 2016Q2

REPORT INFORMATION
  Report Type: Spontaneous
  Country: GB (occurrence: GB)
  Receive Date: 20160512
  Receipt Date: 20160512
  Transmission Date: 20160815
  Serious: Yes (Hospitalization)
  Sender: FDA-Public Use
  Company Number: GB-JNJFOC-20160227527

PATIENT
  Age: 6 Decade
  Sex: Male
  Weight: 112.4 kg

DRUGS (5)
  1. HUMULIN I [Concomitant]
     Active Substance: INSULIN HUMAN
     Route: 065
     Dates: start: 20140903
  2. METFORMIN [Concomitant]
     Active Substance: METFORMIN HYDROCHLORIDE
     Indication: TYPE 2 DIABETES MELLITUS
     Route: 065
     Dates: start: 20070727
  3. INVOKANA [Suspect]
     Active Substance: CANAGLIFLOZIN
     Indication: TYPE 2 DIABETES MELLITUS
     Route: 048
     Dates: start: 20151104
  4. FERROUS FUMARATE [Suspect]
     Active Substance: FERROUS FUMARATE
     Indication: ANAEMIA
     Route: 048
     Dates: start: 20151125, end: 20160110
  5. GLIMEPIRIDE. [Concomitant]
     Active Substance: GLIMEPIRIDE
     Indication: TYPE 2 DIABETES MELLITUS
     Route: 065
     Dates: start: 20130530

REACTIONS (5)
  - Ketonuria [Unknown]
  - Nausea [Unknown]
  - Infection [Unknown]
  - Vomiting [Unknown]
  - Abdominal pain [Unknown]
